FAERS Safety Report 5965012-5 (Version None)
Quarter: 2008Q4

REPORT INFORMATION
  Report Type: 
  Country: None (occurrence: None)
  Receive Date: 20081125
  Receipt Date: 20081113
  Transmission Date: 20090506
  Serious: Yes (Other)
  Sender: FDA-Public Use
  Company Number: PHHY2008JP28312

PATIENT
  Age: 77 Year
  Sex: Female

DRUGS (1)
  1. TOFRANIL [Suspect]
     Route: 048

REACTIONS (1)
  - PARKINSON'S DISEASE [None]
